FAERS Safety Report 5618333-X (Version None)
Quarter: 2008Q1

REPORT INFORMATION
  Report Type: 
  Country: None (occurrence: None)
  Receive Date: 20080114
  Receipt Date: 20070325
  Transmission Date: 20080703
  Serious: Yes (Other)
  Sender: FDA-Public Use
  Company Number: A03200702365

PATIENT
  Age: 45 Year
  Sex: Male
  Weight: 80.7403 kg

DRUGS (1)
  1. PLAVIX [Suspect]
     Indication: STENT PLACEMENT
     Dosage: 75 MG QD, ORAL
     Route: 048
     Dates: start: 20050901

REACTIONS (7)
  - ARTHRALGIA [None]
  - OEDEMA MUCOSAL [None]
  - PHARYNGOLARYNGEAL PAIN [None]
  - PRURITUS [None]
  - PYREXIA [None]
  - RASH [None]
  - SERUM SICKNESS [None]
